FAERS Safety Report 4290891-X (Version None)
Quarter: 2004Q1

REPORT INFORMATION
  Report Type: 
  Country: None (occurrence: None)
  Receive Date: 20040209
  Receipt Date: 20040113
  Transmission Date: 20041129
  Serious: Yes (Death, Hospitalization)
  Sender: FDA-Public Use
  Company Number: 2004001989

PATIENT
  Age: 82 Year
  Sex: Male

DRUGS (13)
  1. AMLODIPINE [Suspect]
     Indication: ILL-DEFINED DISORDER
     Dosage: 15 MG (TID), ORAL
     Route: 048
     Dates: start: 20031119, end: 20031201
  2. NITROGLYCERIN [Suspect]
     Indication: ILL-DEFINED DISORDER
     Dosage: 10 MG (DAILY),  INTRADERMAL
     Route: 023
     Dates: start: 20031119, end: 20031201
  3. NICORANDIL (NICORANDIL) [Suspect]
     Indication: ILL-DEFINED DISORDER
     Dosage: 60 MG (TID), ORAL
     Route: 048
     Dates: start: 20031119, end: 20031201
  4. FLUINDIONE (FLUINDIONE) [Concomitant]
  5. CLAVULANIC ACID (CLAVULANIC ACID) [Concomitant]
  6. NICORANDIL (NICORANDIL) [Concomitant]
  7. BISOPROLOL FUMARATE [Concomitant]
  8. MOLSIDOMINE (MOLSIDOMINE) [Concomitant]
  9. SIMVASTATIN [Concomitant]
  10. TAMSULOSIN (TAMSULOSIN) [Concomitant]
  11. TRIMETAZIDINE (TRIMETAZIDINE) [Concomitant]
  12. BUFLOMEDIL (BUFLOMEDIL) [Concomitant]
  13. TIANEPTINE (TIANEPTINE) [Concomitant]

REACTIONS (2)
  - INTENTIONAL OVERDOSE [None]
  - THROMBOCYTOPENIA [None]
